FAERS Safety Report 19884871 (Version 1)
Quarter: 2021Q3

REPORT INFORMATION
  Report Type: Spontaneous
  Country: US (occurrence: US)
  Receive Date: 20210927
  Receipt Date: 20210927
  Transmission Date: 20211014
  Serious: Yes (Hospitalization)
  Sender: FDA-Public Use
  Company Number: None

PATIENT
  Age: 57 Year
  Sex: Female
  Weight: 59.4 kg

DRUGS (13)
  1. OZEMPIC [Suspect]
     Active Substance: SEMAGLUTIDE
     Indication: DIABETES MELLITUS
     Dosage: ?          OTHER FREQUENCY:ONCE WEEKLEY;?
     Route: 058
     Dates: start: 20210804, end: 20210901
  2. PAROXETINE. [Concomitant]
     Active Substance: PAROXETINE
  3. METFORMIN [Concomitant]
     Active Substance: METFORMIN HYDROCHLORIDE
  4. FOLIC ACID. [Concomitant]
     Active Substance: FOLIC ACID
  5. ATENELOL [Concomitant]
     Active Substance: ATENOLOL
  6. NOVOLOG SLIDING SCALE [Concomitant]
  7. BASAGLAR [Concomitant]
     Active Substance: INSULIN GLARGINE
  8. PANTOPROZOLE [Concomitant]
     Active Substance: PANTOPRAZOLE SODIUM
  9. LISINIPRIL [Concomitant]
     Active Substance: LISINOPRIL
  10. ATORVASTATIN [Concomitant]
     Active Substance: ATORVASTATIN
  11. GLIPIZIDE. [Concomitant]
     Active Substance: GLIPIZIDE
  12. JANUVIA [Concomitant]
     Active Substance: SITAGLIPTIN PHOSPHATE
  13. 81MG ASPIRIN [Concomitant]

REACTIONS (11)
  - Nausea [None]
  - Vomiting [None]
  - Abdominal pain [None]
  - Diverticulitis [None]
  - Weight decreased [None]
  - Blood creatine increased [None]
  - Renal failure [None]
  - Dehydration [None]
  - Productive cough [None]
  - Dyspnoea [None]
  - Haemoglobin decreased [None]

NARRATIVE: CASE EVENT DATE: 20210907
